FAERS Safety Report 10004998 (Version 3)
Quarter: 2014Q2

REPORT INFORMATION
  Report Type: Report from Study
  Country: US (occurrence: US)
  Receive Date: 20140312
  Receipt Date: 20140515
  Transmission Date: 20141212
  Serious: Yes (Other)
  Sender: FDA-Public Use
  Company Number: PHEH2013US014590

PATIENT
  Age: 2 Year
  Sex: Female

DRUGS (7)
  1. AFINITOR [Suspect]
     Indication: GANGLIOGLIOMA
     Dosage: 2.5 MG, 3 TIMES PER WEEK
     Route: 048
     Dates: start: 20130523
  2. AFINITOR [Suspect]
     Dosage: 2.5 MG, DAILY
     Route: 048
  3. KEPPRA [Concomitant]
  4. SABRIL [Concomitant]
  5. FELBAMATE [Concomitant]
  6. VITAMIN B6 [Concomitant]
  7. TAURINE [Concomitant]

REACTIONS (3)
  - Convulsion [Unknown]
  - Weight increased [Unknown]
  - Drug level decreased [Unknown]
